FAERS Safety Report 9717058 (Version 1)
Quarter: 2013Q4

REPORT INFORMATION
  Report Type: Spontaneous
  Country: US (occurrence: US)
  Receive Date: 20131127
  Receipt Date: 20131127
  Transmission Date: 20140711
  Serious: No
  Sender: FDA-Public Use
  Company Number: US-GILEAD-2009-0020743

PATIENT
  Sex: Female
  Weight: 86.18 kg

DRUGS (7)
  1. LETAIRIS [Suspect]
     Indication: PULMONARY ARTERIAL HYPERTENSION
     Route: 048
     Dates: start: 20081226
  2. ACEBUTOLOL [Concomitant]
  3. LEVOXYL [Concomitant]
     Route: 048
     Dates: start: 20081226
  4. METFORMIN [Concomitant]
  5. CELEBREX [Concomitant]
  6. ZOLOFT [Concomitant]
  7. NEXIUM [Concomitant]

REACTIONS (1)
  - Pruritus [Unknown]
